FAERS Safety Report 5367061-7 (Version None)
Quarter: 2007Q2

REPORT INFORMATION
  Report Type: 
  Country: None (occurrence: None)
  Receive Date: 20070622
  Receipt Date: 20070615
  Transmission Date: 20071010
  Serious: No
  Sender: FDA-Public Use
  Company Number: B0473839A

PATIENT
  Sex: Female
  Weight: 69 kg

DRUGS (3)
  1. LAMICTAL [Suspect]
     Indication: BIPOLAR DISORDER
     Route: 048
     Dates: start: 20050906, end: 20070510
  2. LITHIUM CARBONATE [Suspect]
     Indication: DRUG USE FOR UNKNOWN INDICATION
     Route: 065
  3. CIPRALEX [Concomitant]
     Indication: DEPRESSION
     Route: 048
     Dates: start: 20050201

REACTIONS (5)
  - DEPRESSION [None]
  - DRUG INEFFECTIVE [None]
  - FATIGUE [None]
  - INFLUENZA LIKE ILLNESS [None]
  - RASH [None]
